FAERS Safety Report 6731636-0 (Version None)
Quarter: 2010Q2

REPORT INFORMATION
  Report Type: 
  Country: None (occurrence: None)
  Receive Date: 20100519
  Receipt Date: 20100512
  Transmission Date: 20101027
  Serious: Yes (Life-Threatening)
  Sender: FDA-Public Use
  Company Number: NO-BAXTER-2010BH013224

PATIENT
  Age: 67 Year
  Sex: Male

DRUGS (1)
  1. GAMMAGARD LIQUID [Suspect]
     Indication: IMMUNE SYSTEM DISORDER
     Route: 042
     Dates: start: 20100429, end: 20100429

REACTIONS (7)
  - BLOOD PRESSURE INCREASED [None]
  - CHILLS [None]
  - HEADACHE [None]
  - OBSTRUCTIVE AIRWAYS DISORDER [None]
  - PYREXIA [None]
  - TACHYCARDIA [None]
  - VISUAL IMPAIRMENT [None]
